FAERS Safety Report 5240135-7 (Version None)
Quarter: 2007Q1

REPORT INFORMATION
  Report Type: 
  Country: None (occurrence: None)
  Receive Date: 20070216
  Receipt Date: 20070207
  Transmission Date: 20070707
  Serious: Yes (Hospitalization, Other)
  Sender: FDA-Public Use
  Company Number: US-PFIZER INC-2007011018

PATIENT
  Sex: Female
  Weight: 52.2 kg

DRUGS (11)
  1. CHANTIX [Suspect]
     Indication: EX-SMOKER
     Dates: start: 20060101, end: 20070101
  2. SPIRIVA [Interacting]
     Indication: EMPHYSEMA
  3. ADVAIR DISKUS 100/50 [Interacting]
     Indication: EMPHYSEMA
  4. XOPENEX [Interacting]
     Indication: EMPHYSEMA
  5. ERLOTINIB [Concomitant]
  6. LASIX [Concomitant]
  7. POTASSIUM ACETATE [Concomitant]
  8. ACETYLSALICYLIC ACID SRT [Concomitant]
  9. ATIVAN [Concomitant]
  10. OXYCODONE HCL [Concomitant]
  11. PREDNISONE TAB [Concomitant]

REACTIONS (2)
  - DRUG INTERACTION [None]
  - DYSPNOEA [None]
